FAERS Safety Report 10375052 (Version 1)
Quarter: 2014Q3

REPORT INFORMATION
  Report Type: Spontaneous
  Country: US (occurrence: None)
  Receive Date: 20140808
  Receipt Date: 20140808
  Transmission Date: 20150326
  Serious: Yes (Hospitalization, Disabling, Other)
  Sender: FDA-Public Use
  Company Number: None

PATIENT
  Age: 34 Year
  Sex: Male
  Weight: 81.65 kg

DRUGS (1)
  1. RISPERDAL CONSTA [Suspect]
     Active Substance: RISPERIDONE
     Indication: DRUG THERAPY
     Dosage: 1 INJECTION/ 2 WEEKS, EVERY 2 WEEKS, INTO THE MUSCLE
     Route: 030
     Dates: start: 20110405, end: 20140807

REACTIONS (37)
  - Dyspnoea [None]
  - Nausea [None]
  - Mental impairment [None]
  - Aversion [None]
  - Blepharospasm [None]
  - Gait disturbance [None]
  - Agitation [None]
  - Migraine [None]
  - Grimacing [None]
  - Fear of injection [None]
  - Dysstasia [None]
  - Irritability [None]
  - Balance disorder [None]
  - Muscle twitching [None]
  - Hyperacusis [None]
  - Unevaluable event [None]
  - Feeling abnormal [None]
  - Fatigue [None]
  - Rectal haemorrhage [None]
  - Mouth haemorrhage [None]
  - Injection site pain [None]
  - Lethargy [None]
  - Communication disorder [None]
  - Toxicity to various agents [None]
  - Hypohidrosis [None]
  - Heart rate increased [None]
  - Stupor [None]
  - Injury [None]
  - Visual impairment [None]
  - Muscle contracture [None]
  - Muscle spasms [None]
  - Dizziness postural [None]
  - Restless legs syndrome [None]
  - Tremor [None]
  - Tic [None]
  - Dizziness [None]
  - Hyperaesthesia [None]

NARRATIVE: CASE EVENT DATE: 20140807
